FAERS Safety Report 7847123-2 (Version None)
Quarter: 2011Q4

REPORT INFORMATION
  Report Type: 
  Country: None (occurrence: None)
  Receive Date: 20111025
  Receipt Date: 20110415
  Transmission Date: 20120403
  Serious: No
  Sender: FDA-Public Use
  Company Number: US-ALLERGAN-1105324US

PATIENT
  Age: 57 Year
  Sex: Female

DRUGS (1)
  1. BLEPHAMIDE [Suspect]
     Indication: BLEPHARITIS
     Dosage: 1 GTT, QID
     Route: 047
     Dates: start: 20110412, end: 20110414

REACTIONS (4)
  - HEADACHE [None]
  - OCULAR HYPERAEMIA [None]
  - LACRIMATION INCREASED [None]
  - EYE PAIN [None]
